FAERS Safety Report 10020318 (Version 2)
Quarter: 2014Q1

REPORT INFORMATION
  Report Type: Spontaneous
  Country: US (occurrence: US)
  Receive Date: 20140319
  Receipt Date: 20140319
  Transmission Date: 20141002
  Serious: Yes (Other)
  Sender: FDA-Public Use
  Company Number: US-BEH-2011030450

PATIENT
  Age: 56 Year
  Sex: Female

DRUGS (1)
  1. HIZENTRA [Suspect]

REACTIONS (10)
  - Rheumatoid arthritis [Unknown]
  - Fall [Recovered/Resolved]
  - Hypertension [Recovered/Resolved]
  - Ear infection [Recovered/Resolved]
  - Ear infection [Recovered/Resolved]
  - Ear infection [Recovered/Resolved]
  - Ear infection [Recovered/Resolved]
  - Ear infection [Recovered/Resolved]
  - Ear infection [Not Recovered/Not Resolved]
  - Joint effusion [Not Recovered/Not Resolved]
